FAERS Safety Report 6056100-6 (Version None)
Quarter: 2009Q1

REPORT INFORMATION
  Report Type: 
  Country: None (occurrence: None)
  Receive Date: 20090128
  Receipt Date: 20090112
  Transmission Date: 20090719
  Serious: Yes (Other)
  Sender: FDA-Public Use
  Company Number: NL-GENENTECH-276034

PATIENT

DRUGS (3)
  1. RITUXAN [Suspect]
     Indication: RHEUMATOID ARTHRITIS
     Dosage: 1000 MG, DAYS 1+15
     Route: 065
  2. CLEMASTINE FUMARATE [Concomitant]
     Indication: PREMEDICATION
     Dosage: 2 MG, UNK
     Route: 042
  3. ACETAMINOFEN [Concomitant]
     Indication: PREMEDICATION
     Dosage: 1 G, UNK
     Route: 048

REACTIONS (1)
  - EMBOLISM [None]
